FAERS Safety Report 11839185 (Version 2)
Quarter: 2016Q1

REPORT INFORMATION
  Report Type: Report from Study
  Country: US (occurrence: US)
  Receive Date: 20151216
  Receipt Date: 20160129
  Transmission Date: 20160525
  Serious: No
  Sender: FDA-Public Use
  Company Number: PHEH2015US025461

PATIENT
  Age: 72 Year
  Sex: Female
  Weight: 111.57 kg

DRUGS (1)
  1. ENTRESTO [Suspect]
     Active Substance: SACUBITRIL\VALSARTAN
     Indication: CARDIAC FAILURE
     Dosage: 50 MG, BID
     Route: 048
     Dates: start: 20151020

REACTIONS (1)
  - Vascular rupture [Recovered/Resolved]

NARRATIVE: CASE EVENT DATE: 20151203
